FAERS Safety Report 4335801-1 (Version None)
Quarter: 2004Q2

REPORT INFORMATION
  Report Type: 
  Country: None (occurrence: None)
  Receive Date: 20040409
  Receipt Date: 20040324
  Transmission Date: 20050107
  Serious: Yes (Other)
  Sender: FDA-Public Use
  Company Number: PHBS2004JP04119

PATIENT
  Age: 45 Year
  Sex: Male
  Weight: 64 kg

DRUGS (5)
  1. GLEEVEC [Suspect]
     Indication: CHRONIC MYELOID LEUKAEMIA
     Dosage: 400 MG/D
     Route: 048
     Dates: start: 20020401, end: 20020501
  2. GLEEVEC [Suspect]
     Dosage: 400 MG/D
     Route: 048
     Dates: start: 20020601, end: 20021101
  3. GLEEVEC [Suspect]
     Dosage: 600 MG/D
     Route: 048
     Dates: start: 20021101, end: 20030301
  4. GLEEVEC [Suspect]
     Dosage: 500 MG/D
     Route: 048
     Dates: start: 20030301, end: 20030101
  5. GLEEVEC [Suspect]
     Dosage: 400 MG/D
     Route: 048
     Dates: start: 20030101

REACTIONS (4)
  - DRUG EFFECT DECREASED [None]
  - RASH [None]
  - THROMBOCYTOPENIA [None]
  - TRISOMY 8 [None]
